FAERS Safety Report 4294370-5 (Version None)
Quarter: 2004Q1

REPORT INFORMATION
  Report Type: 
  Country: None (occurrence: None)
  Receive Date: 20040211
  Receipt Date: 20030501
  Transmission Date: 20041129
  Serious: Yes (Death, Hospitalization)
  Sender: FDA-Public Use
  Company Number: A0407129A

PATIENT
  Age: 50 Year
  Sex: Male
  Weight: 94.8018 kg

DRUGS (6)
  1. MELPHALAN INJECTION (MELPHALAN) [Suspect]
     Indication: MULTIPLE MYELOMA
     Dosage: 40 MG/ SINGLE DOSE/  INTRAVENOUS
     Route: 042
     Dates: start: 20030416, end: 20030416
  2. GRANULOCYTE CO. STIM. FACT [Concomitant]
  3. PAMIDRONIC ACID [Concomitant]
  4. FOLIC ACID [Concomitant]
  5. INSULIN [Concomitant]
  6. HUMAN SHORT-ACT.INSULIN [Concomitant]

REACTIONS (4)
  - DISEASE PROGRESSION [None]
  - MULTI-ORGAN FAILURE [None]
  - PNEUMONIA KLEBSIELLA [None]
  - SEPSIS [None]
